FAERS Safety Report 7241329-1 (Version None)
Quarter: 2011Q1

REPORT INFORMATION
  Report Type: 
  Country: None (occurrence: None)
  Receive Date: 20110119
  Receipt Date: 20110119
  Transmission Date: 20110831
  Serious: Yes (Hospitalization)
  Sender: FDA-Public Use
  Company Number: None

PATIENT
  Age: 24 Year
  Sex: Female
  Weight: 84 kg

DRUGS (1)
  1. NAPROXEN [Suspect]
     Indication: ENDOMETRIOSIS
     Dosage: 500 MG BID PO
     Route: 048
     Dates: start: 20100914, end: 20100923

REACTIONS (3)
  - ANAEMIA [None]
  - ECCHYMOSIS [None]
  - BLEEDING TIME PROLONGED [None]
